FAERS Safety Report 7615729-1 (Version None)
Quarter: 2011Q3

REPORT INFORMATION
  Report Type: 
  Country: None (occurrence: None)
  Receive Date: 20110711
  Receipt Date: 20110627
  Transmission Date: 20111222
  Serious: Yes (Other)
  Sender: FDA-Public Use
  Company Number: PHHY2011JP15231

PATIENT
  Age: 60 Year
  Sex: Male

DRUGS (6)
  1. BEVACIZUMAB [Suspect]
     Indication: CHOROIDAL NEOVASCULARISATION
  2. BEVACIZUMAB [Suspect]
     Indication: MYOPIA
  3. LUCENTIS [Suspect]
     Indication: CHOROIDAL NEOVASCULARISATION
     Dates: start: 20090615, end: 20090615
  4. LUCENTIS [Suspect]
     Indication: MYOPIA
     Dates: start: 20090615, end: 20090615
  5. VISUDYNE [Suspect]
     Indication: MYOPIA
     Dates: start: 20090220, end: 20090220
  6. VISUDYNE [Suspect]
     Indication: CHOROIDAL NEOVASCULARISATION
     Dates: start: 20090220, end: 20090220

REACTIONS (1)
  - MACULAR HOLE [None]
